FAERS Safety Report 16928230 (Version 2)
Quarter: 2019Q4

REPORT INFORMATION
  Report Type: Report from Study
  Country: HK (occurrence: HK)
  Receive Date: 20191017
  Receipt Date: 20191118
  Transmission Date: 20200122
  Serious: Yes (Death, Hospitalization, Other)
  Sender: FDA-Public Use
  Company Number: HK-ROCHE-2442307

PATIENT
  Age: 64 Year
  Sex: Male

DRUGS (9)
  1. TAZOCIN [Concomitant]
     Active Substance: PIPERACILLIN SODIUM\TAZOBACTAM SODIUM
     Route: 065
     Dates: start: 20190513
  2. VALACICLOVIR [Concomitant]
     Active Substance: VALACYCLOVIR HYDROCHLORIDE
     Route: 065
     Dates: start: 20190513
  3. CARBOPLATIN. [Suspect]
     Active Substance: CARBOPLATIN
     Indication: NON-SMALL CELL LUNG CANCER
     Route: 065
     Dates: start: 20190115
  4. PEMETREXED. [Suspect]
     Active Substance: PEMETREXED
     Indication: NON-SMALL CELL LUNG CANCER
     Route: 065
     Dates: start: 20190115
  5. ESCITALOPRAM OXALATE. [Concomitant]
     Active Substance: ESCITALOPRAM OXALATE
     Indication: ANXIETY
     Dosage: AT NIGHT
     Route: 065
     Dates: start: 20190821, end: 20190910
  6. ACYCLOVIR [ACICLOVIR] [Concomitant]
     Active Substance: ACYCLOVIR
     Route: 042
     Dates: start: 20190513
  7. BEVACIZUMAB. [Suspect]
     Active Substance: BEVACIZUMAB
     Indication: NON-SMALL CELL LUNG CANCER
     Dosage: LAST DOSE ON 22/AUG/2019, PRIOR TO EVENT ONSET.
     Route: 042
     Dates: start: 20190115
  8. ATEZOLIZUMAB. [Suspect]
     Active Substance: ATEZOLIZUMAB
     Indication: NON-SMALL CELL LUNG CANCER
     Dosage: LAST DOSE ON 22/AUG/2019, PRIOR TO EVENT ONSET.
     Route: 042
     Dates: start: 20190115
  9. VANCOMYCIN [Concomitant]
     Active Substance: VANCOMYCIN
     Route: 065
     Dates: start: 20190513

REACTIONS (4)
  - Disease progression [Fatal]
  - Abdominal pain lower [Recovered/Resolved]
  - Muscular weakness [Recovered/Resolved]
  - Deafness [Unknown]

NARRATIVE: CASE EVENT DATE: 201908
